FAERS Safety Report 6017449-6 (Version None)
Quarter: 2008Q4

REPORT INFORMATION
  Report Type: 
  Country: None (occurrence: None)
  Receive Date: 20081223
  Receipt Date: 20081210
  Transmission Date: 20090506
  Serious: Yes (Death, Other)
  Sender: FDA-Public Use
  Company Number: JP-SANOFI-SYNTHELABO-A01200814883

PATIENT
  Sex: Female
  Weight: 44 kg

DRUGS (20)
  1. ACTOS [Concomitant]
     Indication: DIABETES MELLITUS
     Dosage: 30 MG
     Route: 048
     Dates: start: 20071121
  2. AMARYL [Concomitant]
     Indication: DIABETES MELLITUS
     Dosage: 1 MG BID
     Route: 048
     Dates: start: 20071121
  3. SAWACILLIN [Concomitant]
     Indication: PYREXIA
     Dosage: 250 MG TID
     Route: 048
     Dates: start: 20071112, end: 20071114
  4. MEROPEN [Concomitant]
     Indication: PYREXIA
     Dosage: 0.5 G
     Route: 042
     Dates: start: 20071112, end: 20071112
  5. CIPROXAN [Concomitant]
     Indication: PYREXIA
     Dosage: 1 DF
     Route: 048
     Dates: start: 20071111, end: 20071114
  6. CIPROXAN [Concomitant]
     Indication: PYELONEPHRITIS
     Dosage: 1 DF
     Route: 048
     Dates: start: 20071111, end: 20071114
  7. CIPROXAN [Concomitant]
     Indication: PREMEDICATION
     Dosage: 1 DF
     Route: 048
     Dates: start: 20071111, end: 20071114
  8. CIPROXAN [Concomitant]
     Dosage: 100 MG BID (200 MG)
     Route: 048
     Dates: start: 20080107, end: 20080111
  9. CIPROXAN [Concomitant]
     Dosage: 100 MG BID (200 MG)
     Route: 048
     Dates: start: 20080107, end: 20080111
  10. CIPROXAN [Concomitant]
     Dosage: 100 MG BID (200 MG)
     Route: 048
     Dates: start: 20080107, end: 20080111
  11. KYTRIL [Concomitant]
     Indication: PREMEDICATION
     Dosage: 3 MG
     Route: 042
     Dates: start: 20071029, end: 20071217
  12. DECADRON [Concomitant]
     Indication: PREMEDICATION
     Dosage: 8 MG
     Route: 042
     Dates: start: 20071029, end: 20071217
  13. FLUOROURACIL [Suspect]
     Indication: LARGE INTESTINE CARCINOMA
     Dosage: 450 MG BOLUS FOLLOWED BY 2750 MG INFUSION
     Route: 042
     Dates: start: 20071029, end: 20071029
  14. FLUOROURACIL [Suspect]
     Dosage: 430 MG BOLUS FOLLOWED BY 2600 MG INFUSION
     Route: 042
     Dates: start: 20071115, end: 20071129
  15. FLUOROURACIL [Suspect]
     Dosage: 410 MG BOLUS FOLLOWED BY 2500 MG INFUSION
     Route: 041
     Dates: start: 20071217, end: 20071217
  16. ISOVORIN [Suspect]
     Indication: LARGE INTESTINE CARCINOMA
     Route: 041
     Dates: start: 20071029, end: 20071217
  17. ELPLAT [Suspect]
     Indication: LARGE INTESTINE CARCINOMA
     Dosage: 100 MG
     Route: 041
     Dates: start: 20071029, end: 20071029
  18. ELPLAT [Suspect]
     Dosage: 90 MG
     Route: 041
     Dates: start: 20071115, end: 20071129
  19. ELPLAT [Suspect]
     Dosage: 100 MG
     Route: 041
     Dates: start: 20071217, end: 20071217
  20. RED BLOOD CELLS [Concomitant]
     Indication: ANAEMIA
     Dosage: 4 UNITS
     Dates: start: 20071213, end: 20071213

REACTIONS (3)
  - HAEMOGLOBIN DECREASED [None]
  - MELAENA [None]
  - PULMONARY ARTERY THROMBOSIS [None]
